FAERS Safety Report 18796641 (Version 2)
Quarter: 2021Q1

REPORT INFORMATION
  Report Type: Report from Study
  Country: NL (occurrence: NL)
  Receive Date: 20210127
  Receipt Date: 20210303
  Transmission Date: 20210419
  Serious: Yes (Other)
  Sender: FDA-Public Use
  Company Number: NL-INCYTE CORPORATION-2019IN002138

PATIENT

DRUGS (1)
  1. JAKAVI [Suspect]
     Active Substance: RUXOLITINIB
     Indication: POLYCYTHAEMIA VERA
     Dosage: 20 OT
     Route: 048
     Dates: start: 20181126

REACTIONS (18)
  - Abdominal pain upper [Recovered/Resolved]
  - Upper respiratory tract infection [Recovered/Resolved]
  - Dysaesthesia [Not Recovered/Not Resolved]
  - Alanine aminotransferase increased [Not Recovered/Not Resolved]
  - Constipation [Recovered/Resolved]
  - Skin infection [Recovered/Resolved]
  - Oedema peripheral [Recovered/Resolved]
  - Tumour pain [Recovered/Resolved]
  - Alanine aminotransferase increased [Recovered/Resolved]
  - Back pain [Recovered/Resolved]
  - Hypophosphataemia [Recovered/Resolved]
  - Pain of skin [Recovered/Resolved]
  - Aspartate aminotransferase increased [Not Recovered/Not Resolved]
  - Peripheral coldness [Not Recovered/Not Resolved]
  - Flatulence [Not Recovered/Not Resolved]
  - Hypokalaemia [Recovered/Resolved]
  - Hypertension [Not Recovered/Not Resolved]
  - Aspartate aminotransferase increased [Recovered/Resolved]

NARRATIVE: CASE EVENT DATE: 20181126
